FAERS Safety Report 4684133-0 (Version None)
Quarter: 2005Q2

REPORT INFORMATION
  Report Type: 
  Country: None (occurrence: None)
  Receive Date: 20050602
  Receipt Date: 20050418
  Transmission Date: 20051028
  Serious: No
  Sender: FDA-Public Use
  Company Number: 200510773BWH

PATIENT
  Age: 62 Year
  Sex: Male

DRUGS (11)
  1. LEVITRA [Suspect]
     Indication: ERECTILE DYSFUNCTION
     Dosage: 10 MG, OW, ORAL
     Route: 048
     Dates: start: 20050301, end: 20050403
  2. ATENOLOL [Concomitant]
  3. LIPITOR [Concomitant]
  4. SYNTHROID [Concomitant]
  5. VITAMIN E [Concomitant]
  6. ASPIRIN [Concomitant]
  7. HYZAAR [Concomitant]
  8. HUMALOG [Concomitant]
  9. CIALIS [Concomitant]
  10. VIAGRA [Concomitant]
  11. NPH INSULIN [Concomitant]

REACTIONS (1)
  - ERECTILE DYSFUNCTION [None]
